FAERS Safety Report 8979318 (Version 1)
Quarter: 2012Q4

REPORT INFORMATION
  Report Type: Report from Study
  Country: US (occurrence: US)
  Receive Date: 20121221
  Receipt Date: 20121221
  Transmission Date: 20130627
  Serious: Yes (Other)
  Sender: FDA-Public Use
  Company Number: US-ABBOTT-12P-163-1021725-00

PATIENT
  Age: 28 Year
  Sex: Female

DRUGS (9)
  1. HUMIRA [Suspect]
     Indication: CROHN^S DISEASE
     Dates: start: 200811, end: 200904
  2. CLINDAMYCIN [Suspect]
     Indication: TOOTH INFECTION
     Dates: start: 201211
  3. CALCIUM [Concomitant]
     Indication: BLOOD CALCIUM DECREASED
  4. VITAMIN D NOS [Concomitant]
     Indication: VITAMIN D DEFICIENCY
  5. FOLIC ACID [Concomitant]
     Indication: FOLATE DEFICIENCY
  6. CIMZIA [Concomitant]
     Indication: PRODUCT USED FOR UNKNOWN INDICATION
     Dates: start: 201103, end: 201211
  7. CELEXA [Concomitant]
     Indication: DEPRESSION
     Dosage: 20 mg, daily
     Dates: start: 201211
  8. IMODIUM [Concomitant]
     Indication: DIARRHOEA
     Dosage: 2.5 mg, four times daily
  9. LOMOTIL [Concomitant]
     Indication: DIARRHOEA
     Dosage: 16 mg, daily

REACTIONS (14)
  - Fistula [Unknown]
  - Colitis ulcerative [Not Recovered/Not Resolved]
  - Soft tissue infection [Unknown]
  - Post procedural complication [Unknown]
  - Female genital tract fistula [Not Recovered/Not Resolved]
  - Crohn^s disease [Unknown]
  - Tooth infection [Unknown]
  - Oesophageal disorder [Unknown]
  - Dysphagia [Unknown]
  - Depression [Unknown]
  - Blood calcium decreased [Unknown]
  - Vitamin D deficiency [Unknown]
  - Folate deficiency [Unknown]
  - Hypophagia [Unknown]
